FAERS Safety Report 9407117 (Version 1)
Quarter: 2013Q3

REPORT INFORMATION
  Report Type: Spontaneous
  Country: IN (occurrence: IN)
  Receive Date: 20130718
  Receipt Date: 20130718
  Transmission Date: 20140515
  Serious: Yes (Other)
  Sender: FDA-Public Use
  Company Number: PHHY2013IN073736

PATIENT
  Age: 65 Year
  Sex: Female

DRUGS (3)
  1. ATORVASTATIN [Suspect]
     Dosage: 10 MG, QD
  2. AMLODIPINE [Interacting]
     Dosage: 10 MG, QD
  3. CLOPIDOGREL [Interacting]
     Dosage: 75 MG, QD

REACTIONS (12)
  - Renal failure acute [Recovering/Resolving]
  - Rhabdomyolysis [Recovering/Resolving]
  - Gait disturbance [Recovering/Resolving]
  - Myalgia [Recovering/Resolving]
  - Posture abnormal [Recovering/Resolving]
  - Swelling face [Recovering/Resolving]
  - Local swelling [Recovering/Resolving]
  - Decreased appetite [Recovering/Resolving]
  - Nausea [Recovering/Resolving]
  - Urine output decreased [Recovering/Resolving]
  - Chromaturia [Recovering/Resolving]
  - Drug interaction [Unknown]
